FAERS Safety Report 7227907-4 (Version None)
Quarter: 2011Q1

REPORT INFORMATION
  Report Type: 
  Country: None (occurrence: None)
  Receive Date: 20110112
  Receipt Date: 20110112
  Transmission Date: 20110831
  Serious: No
  Sender: FDA-Public Use
  Company Number: None

PATIENT
  Age: 29 Year
  Sex: Female
  Weight: 107.0489 kg

DRUGS (1)
  1. MORPHINE [Suspect]
     Indication: PROCEDURAL PAIN
     Dosage: 4MG ONCE IV
     Route: 042
     Dates: start: 20100106, end: 20100106

REACTIONS (2)
  - INJECTION SITE URTICARIA [None]
  - INJECTION SITE ERYTHEMA [None]
